FAERS Safety Report 6100098-9 (Version None)
Quarter: 2009Q1

REPORT INFORMATION
  Report Type: 
  Country: None (occurrence: None)
  Receive Date: 20090226
  Receipt Date: 20090217
  Transmission Date: 20090719
  Serious: Yes (Life-Threatening)
  Sender: FDA-Public Use
  Company Number: JHP200900021

PATIENT
  Age: 30 Year
  Sex: Female
  Weight: 58 kg

DRUGS (8)
  1. PITRESSIN [Suspect]
     Indication: HAEMOSTASIS
     Dosage: 6 UNITS- INTRAMYHOMETRIAL INJECTION (30ML OF 0.2 U/ML DILUTION), INTRAMUSCULAR
     Route: 030
  2. THIOPENTAL SODIUM [Suspect]
     Indication: GENERAL ANAESTHESIA
     Dosage: 250 MG, INTRAVENOUS
     Route: 042
  3. VECURONIUM BROMIDE [Suspect]
     Indication: GENERAL ANAESTHESIA
     Dosage: 8 MG, INTRAVENOUS
     Route: 042
  4. SEVOFLURANE [Suspect]
     Indication: GENERAL ANAESTHESIA
     Dosage: 1% CONCENTRATION, INHALATION
     Route: 055
  5. NITROUS OXIDE W/ OXYGEN [Suspect]
     Indication: GENERAL ANAESTHESIA
     Dosage: 4 L/MIN, INHALATION
     Route: 055
  6. MIDAZOLAM HCL [Suspect]
     Indication: ANAESTHESIA
     Dosage: 2.5 MG, INTRAMUSCULAR
     Route: 030
  7. MEPIVACAINE (MEPIVACAINE) 1% [Suspect]
     Dosage: 5 ML, EPIDURAL
     Route: 008
  8. FENTANYL-100 [Suspect]
     Dosage: 0.1 MG, EPIDURAL
     Route: 008

REACTIONS (6)
  - BLOOD PRESSURE INCREASED [None]
  - ELECTROCARDIOGRAM ST SEGMENT DEPRESSION [None]
  - HEART RATE DECREASED [None]
  - HEART RATE INCREASED [None]
  - HYPOTENSION [None]
  - VENTRICULAR EXTRASYSTOLES [None]
